FAERS Safety Report 6932269-3 (Version None)
Quarter: 2010Q3

REPORT INFORMATION
  Report Type: 
  Country: None (occurrence: None)
  Receive Date: 20100819
  Receipt Date: 20100816
  Transmission Date: 20110219
  Serious: Yes (Hospitalization)
  Sender: FDA-Public Use
  Company Number: DE-AMGEN-UK424488

PATIENT
  Age: 71 Year
  Sex: Female

DRUGS (3)
  1. VECTIBIX [Suspect]
     Indication: NON-SMALL CELL LUNG CANCER
     Dates: start: 20100603
  2. PEMETREXED DISODIUM [Suspect]
     Dates: start: 20100603
  3. CISPLATIN [Suspect]
     Dates: start: 20100603

REACTIONS (5)
  - HYPOKALAEMIA [None]
  - HYPONATRAEMIA [None]
  - OVERDOSE [None]
  - REFLUX OESOPHAGITIS [None]
  - THROMBOPHLEBITIS [None]
